FAERS Safety Report 5913284-5 (Version None)
Quarter: 2008Q4

REPORT INFORMATION
  Report Type: 
  Country: None (occurrence: None)
  Receive Date: 20081009
  Receipt Date: 20081002
  Transmission Date: 20090506
  Serious: Yes (Death, Hospitalization)
  Sender: FDA-Public Use
  Company Number: JP-ASTRAZENECA-2008SE04209

PATIENT
  Sex: Female
  Weight: 43 kg

DRUGS (10)
  1. BLOPRESS [Suspect]
     Indication: HYPERTENSION
     Route: 048
     Dates: start: 20060516, end: 20071028
  2. BLOPRESS [Suspect]
     Route: 048
     Dates: start: 20071029, end: 20071202
  3. BLOPRESS [Suspect]
     Route: 048
     Dates: start: 20071203, end: 20080121
  4. BLOPRESS [Suspect]
     Route: 048
     Dates: start: 20080130, end: 20080204
  5. PRAVASTATIN SODIUM [Concomitant]
     Route: 048
     Dates: end: 20080910
  6. BUFFERIN [Concomitant]
     Route: 048
     Dates: end: 20080910
  7. SECTRAL [Concomitant]
     Route: 048
     Dates: end: 20080701
  8. DIPYRIDAMOLE [Concomitant]
     Route: 048
     Dates: end: 20080531
  9. NIVADIL [Concomitant]
     Route: 048
     Dates: end: 20080118
  10. ADALAT [Concomitant]
     Indication: HYPERTENSION
     Route: 048
     Dates: start: 20080121

REACTIONS (1)
  - TONGUE NEOPLASM MALIGNANT STAGE UNSPECIFIED [None]
